FAERS Safety Report 11797883 (Version 1)
Quarter: 2015Q4

REPORT INFORMATION
  Report Type: Spontaneous
  Country: DE (occurrence: DE)
  Receive Date: 20151203
  Receipt Date: 20151203
  Transmission Date: 20160305
  Serious: Yes (Other)
  Sender: FDA-Public Use
  Company Number: GXKR2015DE005296

PATIENT

DRUGS (2)
  1. RAMIPRIL. [Concomitant]
     Active Substance: RAMIPRIL
     Indication: HYPERTENSION
     Dosage: 2.5 MG, QD
     Route: 048
  2. CEFPODOXIM 1A PHARMA [Suspect]
     Active Substance: CEFPODOXIME PROXETIL
     Indication: PNEUMONIA BACTERIAL
     Dosage: 200 MG, BID
     Route: 048
     Dates: start: 20151120, end: 20151121

REACTIONS (7)
  - Headache [Recovered/Resolved]
  - Hypersensitivity [Recovered/Resolved]
  - Dizziness [Recovered/Resolved]
  - Blood pressure increased [Recovered/Resolved]
  - Swollen tongue [Recovered/Resolved]
  - VIIth nerve paralysis [Recovered/Resolved]
  - Sleep disorder [Recovered/Resolved]

NARRATIVE: CASE EVENT DATE: 201511
